FAERS Safety Report 5631059-1 (Version None)
Quarter: 2008Q1

REPORT INFORMATION
  Report Type: 
  Country: None (occurrence: None)
  Receive Date: 20080219
  Receipt Date: 20080206
  Transmission Date: 20080703
  Serious: Yes (Hospitalization)
  Sender: FDA-Public Use
  Company Number: TR-ELI_LILLY_AND_COMPANY-TR200802003454

PATIENT
  Sex: Male
  Weight: 65 kg

DRUGS (3)
  1. HUMALOG [Suspect]
     Dosage: 6 U, EACH MORNING AND EVENING
     Route: 058
     Dates: start: 20071201
  2. HUMALOG [Suspect]
     Dosage: UNK, UNKNOWN
     Route: 058
  3. LANTUS [Concomitant]
     Dosage: 18 IU, EACH EVENING
     Route: 058

REACTIONS (1)
  - WOUND [None]
